FAERS Safety Report 20206590 (Version 1)
Quarter: 2021Q4

REPORT INFORMATION
  Report Type: Spontaneous
  Country: PL (occurrence: PL)
  Receive Date: 20211220
  Receipt Date: 20211220
  Transmission Date: 20220303
  Serious: Yes (Hospitalization)
  Sender: FDA-Public Use
  Company Number: PL-KRKA-PL2021K14706LIT

PATIENT
  Age: 19 Year
  Sex: Female

DRUGS (4)
  1. CLARITHROMYCIN [Suspect]
     Active Substance: CLARITHROMYCIN
     Indication: Pharyngitis streptococcal
     Dosage: 1000 MILLIGRAM, QD, 500 MG, 2X PER DAY
     Route: 048
  2. DEXAMETHASONE [Concomitant]
     Active Substance: DEXAMETHASONE
     Indication: Thrombocytopenia
     Dosage: 40 MILLIGRAM, QD
     Route: 042
  3. AMOXICILLIN [Concomitant]
     Active Substance: AMOXICILLIN
     Indication: Pharyngitis streptococcal
     Dosage: 3 GRAM, QD, 1 G, 3X PER DAY
     Route: 042
  4. CLAVULANIC ACID [Concomitant]
     Active Substance: CLAVULANIC ACID
     Indication: Pharyngitis streptococcal
     Dosage: 600 MILLIGRAM, QD, 200 MG, 3X PER DAY
     Route: 042

REACTIONS (2)
  - Ecchymosis [Recovered/Resolved]
  - Immune thrombocytopenia [Recovered/Resolved]
